FAERS Safety Report 9983362 (Version 1)
Quarter: 2014Q1

REPORT INFORMATION
  Report Type: Spontaneous
  Country: GB (occurrence: GB)
  Receive Date: 20140307
  Receipt Date: 20140307
  Transmission Date: 20141002
  Serious: Yes (Hospitalization, Other)
  Sender: FDA-Public Use
  Company Number: GB-INCYTE CORPORATION-2014IN000528

PATIENT
  Age: 80 Year
  Sex: Male

DRUGS (13)
  1. JAKAVI [Suspect]
     Indication: MYELOFIBROSIS
     Dosage: 20 MG, BID
     Route: 048
     Dates: end: 20140212
  2. ALLOPURINOL [Concomitant]
  3. FERROUS SULFATE [Concomitant]
  4. FOLIC ACID [Concomitant]
  5. FUROSEMIDE [Concomitant]
  6. OMEPRAZOLE [Concomitant]
  7. SOTALOL [Concomitant]
  8. TIMOLOL [Concomitant]
  9. VITAMIN B COMPLEX [Concomitant]
  10. NICOTINAMIDE [Concomitant]
  11. RIBOFLAVIN [Concomitant]
  12. PYRIDOXINE HYDROCHLORIDE [Concomitant]
  13. THIAMINE HYDROCHLORIDE [Concomitant]

REACTIONS (2)
  - Inappropriate antidiuretic hormone secretion [Recovered/Resolved]
  - Anaemia [Unknown]
